FAERS Safety Report 9296917 (Version 1)
Quarter: 2013Q2

REPORT INFORMATION
  Report Type: Report from Study
  Country: AR (occurrence: AR)
  Receive Date: 20130518
  Receipt Date: 20130518
  Transmission Date: 20140414
  Serious: Yes (Death, Hospitalization)
  Sender: FDA-Public Use
  Company Number: AR-ROCHE-1224684

PATIENT
  Age: 88 Year
  Sex: Male

DRUGS (1)
  1. RANIBIZUMAB [Suspect]
     Indication: MACULOPATHY
     Dosage: ONE OR TWO AMPOULES
     Route: 050
     Dates: start: 201111

REACTIONS (3)
  - Cardio-respiratory arrest [Fatal]
  - Mental disorder [Fatal]
  - Pneumonia [Fatal]
